FAERS Safety Report 12750013 (Version 2)
Quarter: 2017Q1

REPORT INFORMATION
  Report Type: Report from Study
  Country: GB (occurrence: GB)
  Receive Date: 20160916
  Receipt Date: 20170117
  Transmission Date: 20170428
  Serious: Yes (Other)
  Sender: FDA-Public Use
  Company Number: GB-JNJFOC-20160908451

PATIENT
  Sex: Male

DRUGS (1)
  1. STELARA [Suspect]
     Active Substance: USTEKINUMAB
     Indication: PSORIATIC ARTHROPATHY
     Dosage: ONE SYRINGE ON WEEK 4
     Route: 058

REACTIONS (3)
  - Drug ineffective [Unknown]
  - Lower respiratory tract infection [Unknown]
  - Arthralgia [Unknown]
